FAERS Safety Report 18657684 (Version 3)
Quarter: 2021Q2

REPORT INFORMATION
  Report Type: Spontaneous
  Country: US (occurrence: US)
  Receive Date: 20201223
  Receipt Date: 20210630
  Transmission Date: 20210717
  Serious: No
  Sender: FDA-Public Use
  Company Number: US-TAKEDA-2020TUS059612

PATIENT
  Age: 35 Year
  Sex: Female

DRUGS (2)
  1. ALUNBRIG [Suspect]
     Active Substance: BRIGATINIB
     Indication: BRONCHIAL NEOPLASM
     Dosage: 180 MILLIGRAM, QD
     Route: 065
  2. ALUNBRIG [Suspect]
     Active Substance: BRIGATINIB
     Indication: LUNG NEOPLASM MALIGNANT

REACTIONS (2)
  - Product dose omission issue [Unknown]
  - Cough [Unknown]

NARRATIVE: CASE EVENT DATE: 20201214
